FAERS Safety Report 9422483 (Version 1)
Quarter: 2013Q3

REPORT INFORMATION
  Report Type: Spontaneous
  Country: US (occurrence: US)
  Receive Date: 20130724
  Receipt Date: 20130724
  Transmission Date: 20140515
  Serious: Yes (Death)
  Sender: FDA-Public Use
  Company Number: AUR-APL-2013-06087

PATIENT
  Age: 60 Year
  Sex: Female

DRUGS (4)
  1. AMLODIPINE [Suspect]
     Indication: PRODUCT USED FOR UNKNOWN INDICATION
  2. DIAZEPAM (DIAZEPAM) [Concomitant]
  3. ZOLPIDEM (ZOLPIDEM) [Concomitant]
  4. IBUPROFEN (IBUPROFEN) [Concomitant]

REACTIONS (2)
  - Self-medication [None]
  - Completed suicide [None]
